FAERS Safety Report 9403411 (Version 2)
Quarter: 2013Q3

REPORT INFORMATION
  Report Type: Spontaneous
  Country: US (occurrence: US)
  Receive Date: 20130716
  Receipt Date: 20130722
  Transmission Date: 20140515
  Serious: Yes (Hospitalization, Other)
  Sender: FDA-Public Use
  Company Number: US-BAXTER-2013BAX027442

PATIENT
  Sex: Female
  Weight: 72.73 kg

DRUGS (3)
  1. HEPARIN SODIUM IN 0.9% SODIUM CHLORIDE INJECTION [Suspect]
     Indication: PRODUCT USED FOR UNKNOWN INDICATION
     Route: 042
     Dates: start: 201210
  2. COUMADIN [Suspect]
     Indication: PRODUCT USED FOR UNKNOWN INDICATION
  3. XARELTO [Concomitant]
     Indication: PRODUCT USED FOR UNKNOWN INDICATION

REACTIONS (11)
  - Drug hypersensitivity [Unknown]
  - Peripheral artery thrombosis [Recovering/Resolving]
  - Cardiovascular disorder [Unknown]
  - Skin discolouration [Not Recovered/Not Resolved]
  - Aortic aneurysm [Not Recovered/Not Resolved]
  - Lung disorder [Unknown]
  - Pulmonary thrombosis [Recovering/Resolving]
  - Cerebrovascular accident [Recovered/Resolved with Sequelae]
  - Weaning failure [Not Recovered/Not Resolved]
  - Pneumonia [Recovered/Resolved]
  - Decubitus ulcer [Not Recovered/Not Resolved]
